FAERS Safety Report 9667235 (Version 1)
Quarter: 2013Q4

REPORT INFORMATION
  Report Type: Spontaneous
  Country: US (occurrence: US)
  Receive Date: 20131104
  Receipt Date: 20131104
  Transmission Date: 20140711
  Serious: No
  Sender: FDA-Public Use
  Company Number: US-BIOGENIDEC-2013BI090439

PATIENT
  Sex: Male

DRUGS (4)
  1. TECFIDERA [Suspect]
     Indication: MULTIPLE SCLEROSIS
     Route: 048
     Dates: start: 20130814
  2. ALEVE [Concomitant]
  3. GABAPENTIN [Concomitant]
  4. MULTIVITAMINS [Concomitant]

REACTIONS (3)
  - Paraesthesia [Unknown]
  - Flushing [Unknown]
  - Diarrhoea [Unknown]
